FAERS Safety Report 26091137 (Version 2)
Quarter: 2025Q4

REPORT INFORMATION
  Report Type: Report from Study
  Country: EU (occurrence: EU)
  Receive Date: 20251126
  Receipt Date: 20251202
  Transmission Date: 20260118
  Serious: Yes (Other)
  Sender: JOHNSON AND JOHNSON
  Company Number: EU-JNJFOC-20251162781

PATIENT
  Age: 58 Year
  Sex: Male

DRUGS (1)
  1. BALVERSA [Suspect]
     Active Substance: ERDAFITINIB
     Indication: Transitional cell carcinoma metastatic
     Route: 048
     Dates: start: 202508

REACTIONS (5)
  - Gastrointestinal toxicity [Recovered/Resolved]
  - Vision blurred [Recovered/Resolved]
  - Skin disorder [Recovered/Resolved]
  - Stomatitis [Recovered/Resolved]
  - Eye discharge [Recovered/Resolved]
